FAERS Safety Report 13446734 (Version 1)
Quarter: 2017Q2

REPORT INFORMATION
  Report Type: Report from Study
  Country: ES (occurrence: ES)
  Receive Date: 20170417
  Receipt Date: 20170417
  Transmission Date: 20170830
  Serious: Yes (Other)
  Sender: FDA-Public Use
  Company Number: ES-ROCHE-1921536

PATIENT
  Age: 73 Year

DRUGS (2)
  1. RITUXIMAB [Suspect]
     Active Substance: RITUXIMAB
     Indication: B-CELL LYMPHOMA
     Dosage: ON DAY 1 AND DAY 7
     Route: 042
  2. YTTRIUM-90 IBRITUMOMAB TIUXETAN [Suspect]
     Active Substance: IBRITUMOMAB TIUXETAN
     Indication: B-CELL LYMPHOMA
     Dosage: (0.4 MCI/KG FOR PATIENTS WITH PLATELET COUNT MORE THAN 150000/UL AND 0.3 MCI/KG FOR PATIENTS WITH PL
     Route: 042

REACTIONS (1)
  - Invasive ductal breast carcinoma [Unknown]
